FAERS Safety Report 6363416-2 (Version None)
Quarter: 2009Q3

REPORT INFORMATION
  Report Type: 
  Country: None (occurrence: None)
  Receive Date: 20090919
  Receipt Date: 20090626
  Transmission Date: 20100115
  Serious: No
  Sender: FDA-Public Use
  Company Number: US-ABBOTT-09P-163-0581823-00

PATIENT
  Sex: Female
  Weight: 90.8 kg

DRUGS (5)
  1. HUMIRA [Suspect]
     Indication: PSORIASIS
     Route: 058
     Dates: start: 20080603
  2. NEXIUM [Concomitant]
     Indication: HIATUS HERNIA
     Route: 048
  3. ESTROGEN [Concomitant]
     Indication: HORMONE REPLACEMENT THERAPY
     Route: 048
  4. MOTRIN [Concomitant]
     Indication: FIBROMYALGIA
     Route: 048
  5. CYMBALTA [Concomitant]
     Indication: FIBROMYALGIA
     Route: 048

REACTIONS (7)
  - BLOOD PRESSURE INCREASED [None]
  - CHEST PAIN [None]
  - LYMPHADENOPATHY [None]
  - PALPITATIONS [None]
  - PARATRACHEAL LYMPHADENOPATHY [None]
  - PULSE PRESSURE DECREASED [None]
  - SPLENOMEGALY [None]
